FAERS Safety Report 23679023 (Version 1)
Quarter: 2024Q1

REPORT INFORMATION
  Report Type: Spontaneous
  Country: US (occurrence: None)
  Receive Date: 20240326
  Receipt Date: 20240326
  Transmission Date: 20240410
  Serious: Yes (unspecified)
  Sender: FDA-Public Use
  Company Number: None

PATIENT
  Age: 79 Year
  Sex: Female
  Weight: 81.6 kg

DRUGS (4)
  1. CAPIVASERTIB [Suspect]
     Active Substance: CAPIVASERTIB
     Indication: Breast cancer metastatic
     Dosage: FREQUENCY : TWICE A DAY;?
     Route: 048
     Dates: start: 20240311, end: 20240322
  2. CAPIVASERTIB [Suspect]
     Active Substance: CAPIVASERTIB
     Indication: PIK3CA-activated mutation
  3. FULVESTRANT [Concomitant]
     Active Substance: FULVESTRANT
     Dates: start: 20240311
  4. LEVOTHYROXINE [Concomitant]
     Active Substance: LEVOTHYROXINE\LEVOTHYROXINE SODIUM
     Dates: start: 20220401

REACTIONS (1)
  - Skin reaction [None]

NARRATIVE: CASE EVENT DATE: 20240325
